FAERS Safety Report 9419906 (Version 1)
Quarter: 2013Q3

REPORT INFORMATION
  Report Type: Spontaneous
  Country: US (occurrence: None)
  Receive Date: 20130723
  Receipt Date: 20130723
  Transmission Date: 20140515
  Serious: Yes (Other)
  Sender: FDA-Public Use
  Company Number: None

PATIENT
  Age: 42 Year
  Sex: Female
  Weight: 58.06 kg

DRUGS (1)
  1. METRONIDAZOLE [Suspect]
     Indication: BACTERIAL INFECTION
     Dosage: 1 APPLICATORFUL ONCE A DAY, 5 DAYS VAG
     Dates: start: 20130719, end: 20130719

REACTIONS (7)
  - Paraesthesia [None]
  - Hypoaesthesia [None]
  - Headache [None]
  - Chromaturia [None]
  - Pyrexia [None]
  - Dizziness [None]
  - Vision blurred [None]
